FAERS Safety Report 6539189-7 (Version None)
Quarter: 2010Q1

REPORT INFORMATION
  Report Type: 
  Country: None (occurrence: None)
  Receive Date: 20100115
  Receipt Date: 20100107
  Transmission Date: 20100710
  Serious: Yes (Other)
  Sender: FDA-Public Use
  Company Number: US-JNJFOC-20100103784

PATIENT
  Age: 49 Year
  Sex: Female
  Weight: 79.38 kg

DRUGS (4)
  1. TYLENOL (CAPLET) [Suspect]
     Indication: ARTHRITIS
  2. TYLENOL (CAPLET) [Suspect]
     Indication: SURGERY
  3. COZAAR [Concomitant]
     Indication: HYPERTENSION
  4. SYNTHROID [Concomitant]
     Indication: THYROID DISORDER

REACTIONS (3)
  - DIARRHOEA [None]
  - PRODUCT QUALITY ISSUE [None]
  - VOMITING [None]
